FAERS Safety Report 7512891-6 (Version None)
Quarter: 2011Q2

REPORT INFORMATION
  Report Type: 
  Country: None (occurrence: None)
  Receive Date: 20110531
  Receipt Date: 20110527
  Transmission Date: 20111010
  Serious: Yes (Life-Threatening)
  Sender: FDA-Public Use
  Company Number: FR-JNJFOC-20110508086

PATIENT
  Sex: Male
  Weight: 84 kg

DRUGS (4)
  1. COLIMYCIN [Concomitant]
     Indication: LUNG DISORDER
     Dosage: 1 DOSE = 2 MILION IU
     Route: 055
     Dates: start: 20110511
  2. DORIBAX [Suspect]
     Route: 041
     Dates: start: 20110511, end: 20110512
  3. DORIBAX [Suspect]
     Indication: BACTERIAL DISEASE CARRIER
     Route: 041
     Dates: start: 20110512
  4. BACTRIM [Concomitant]
     Indication: LUNG DISORDER
     Route: 042
     Dates: start: 20110511

REACTIONS (1)
  - OVERDOSE [None]
